FAERS Safety Report 10549570 (Version 2)
Quarter: 2015Q1

REPORT INFORMATION
  Report Type: Spontaneous
  Country: US (occurrence: None)
  Receive Date: 20141020
  Receipt Date: 20150120
  Transmission Date: 20150720
  Serious: No
  Sender: FDA-Public Use
  Company Number: AEGR000643

PATIENT
  Age: 66 Year
  Sex: Female
  Weight: 90.7 kg

DRUGS (13)
  1. CALCIUM W/VITAMIN D (CALCIUM, VITAMIN D NOS) [Concomitant]
  2. IRBESARTAN. [Concomitant]
     Active Substance: IRBESARTAN
  3. HYDROCHLOROTHIAZIDE. [Concomitant]
     Active Substance: HYDROCHLOROTHIAZIDE
  4. POTASSIUM CHLORIDE. [Concomitant]
     Active Substance: POTASSIUM CHLORIDE
  5. ASPIRIN (ACETYLSALICYCLIC ACID) [Concomitant]
     Active Substance: ASPIRIN
  6. ZETIA [Suspect]
     Active Substance: EZETIMIBE
     Indication: PRODUCT USED FOR UNKNOWN INDICATION
  7. OMEPRAZOLE. [Concomitant]
     Active Substance: OMEPRAZOLE
  8. OMEGA (CONVALLARIA MAJALIS, CRATAEGUS LAEVIGATA, PROXYPHYLLINE) [Concomitant]
  9. PEPTOBISMOL (BISMUTH SUBSALICYLATE) [Concomitant]
  10. ATENOLOL. [Concomitant]
     Active Substance: ATENOLOL
  11. VITAMIN E (TOCOPHERYL ACID SUCCINATE) [Concomitant]
  12. IBUPROFEN. [Concomitant]
     Active Substance: IBUPROFEN
  13. JUXTAPID [Suspect]
     Active Substance: LOMITAPIDE MESYLATE
     Indication: TYPE IIA HYPERLIPIDAEMIA
     Route: 048
     Dates: start: 20140719, end: 20140731

REACTIONS (8)
  - Gastrointestinal motility disorder [None]
  - Weight decreased [None]
  - Nausea [None]
  - Infrequent bowel movements [None]
  - Dizziness [None]
  - Drug dose omission [None]
  - Constipation [None]
  - Diarrhoea [None]

NARRATIVE: CASE EVENT DATE: 201407
